FAERS Safety Report 10066812 (Version 1)
Quarter: 2014Q2

REPORT INFORMATION
  Report Type: Report from Study
  Country: BR (occurrence: BR)
  Receive Date: 20140408
  Receipt Date: 20140408
  Transmission Date: 20141212
  Serious: Yes (Hospitalization, Other)
  Sender: FDA-Public Use
  Company Number: PHHY2014BR042084

PATIENT
  Sex: Male
  Weight: 83 kg

DRUGS (1)
  1. DIOVAN AMLO FIX [Suspect]
     Indication: HYPERTENSION
     Dosage: 1 DF, (80 MG VALSA/5 MG AMLO) DAILY
     Route: 048

REACTIONS (3)
  - Infarction [Recovered/Resolved]
  - Hypothyroidism [Recovered/Resolved]
  - Blood triglycerides decreased [Recovered/Resolved]
